FAERS Safety Report 6602065-5 (Version None)
Quarter: 2010Q1

REPORT INFORMATION
  Report Type: 
  Country: None (occurrence: None)
  Receive Date: 20100225
  Receipt Date: 20100215
  Transmission Date: 20100710
  Serious: Yes (Other)
  Sender: FDA-Public Use
  Company Number: PHHY2009NZ51875

PATIENT
  Sex: Female

DRUGS (5)
  1. CLOZARIL [Suspect]
     Indication: SCHIZOAFFECTIVE DISORDER
     Dosage: 250 MG, UNK
     Route: 048
     Dates: start: 20090929
  2. CLOZARIL [Suspect]
     Dosage: 200 MG AT NIGHT
     Route: 048
  3. METFORMIN [Concomitant]
  4. VENLAFAXINE [Concomitant]
     Indication: DEPRESSION
     Dosage: 300 MG, UNK
     Dates: start: 20090401
  5. LITHIUM [Concomitant]
     Indication: DEPRESSION
     Dosage: 1250 MG, UNK
     Dates: start: 20090401

REACTIONS (2)
  - ELECTROCARDIOGRAM QT PROLONGED [None]
  - SINUS TACHYCARDIA [None]
